FAERS Safety Report 7605259-5 (Version None)
Quarter: 2011Q3

REPORT INFORMATION
  Report Type: 
  Country: None (occurrence: None)
  Receive Date: 20110712
  Receipt Date: 20110712
  Transmission Date: 20111222
  Serious: No
  Sender: FDA-Public Use
  Company Number: None

PATIENT
  Age: 61 Year
  Sex: Male
  Weight: 64 kg

DRUGS (1)
  1. ENOXAPARIN [Suspect]
     Dosage: SQ
     Route: 058
     Dates: start: 20110317, end: 20110318

REACTIONS (3)
  - HAEMOGLOBIN DECREASED [None]
  - HAEMATOMA [None]
  - FALL [None]
